FAERS Safety Report 5124043-8 (Version None)
Quarter: 2006Q4

REPORT INFORMATION
  Report Type: 
  Country: None (occurrence: None)
  Receive Date: 20061010
  Receipt Date: 20050811
  Transmission Date: 20070319
  Serious: No
  Sender: FDA-Public Use
  Company Number: US-BRISTOL-MYERS SQUIBB COMPANY-13082599

PATIENT
  Age: 55 Year
  Sex: Male

DRUGS (2)
  1. APROVEL TABS 150 MG [Suspect]
     Indication: HYPERTENSION
     Dosage: DURATION: SEVERAL YEARS, USED APROVEL OBTAINED FROM KOREA AND UNITED STATES
     Route: 048
  2. NORVASC [Concomitant]
     Indication: HYPERTENSION
     Route: 048

REACTIONS (1)
  - DRUG INEFFECTIVE [None]
